FAERS Safety Report 20255015 (Version 2)
Quarter: 2022Q1

REPORT INFORMATION
  Report Type: Spontaneous
  Country: EE (occurrence: EE)
  Receive Date: 20211230
  Receipt Date: 20220112
  Transmission Date: 20220424
  Serious: Yes (Other)
  Sender: FDA-Public Use
  Company Number: EE-002147023-NVSC2021EE284164

PATIENT
  Age: 52 Year
  Sex: Male

DRUGS (5)
  1. IDARUBICIN HYDROCHLORIDE [Suspect]
     Active Substance: IDARUBICIN HYDROCHLORIDE
     Indication: Acute myeloid leukaemia
     Dosage: UNK (DAYS  1-5)
     Route: 065
     Dates: start: 201908
  2. RYDAPT [Suspect]
     Active Substance: MIDOSTAURIN
     Indication: Acute myeloid leukaemia
     Dosage: 50 MG, BID (DAYS 8-21)
     Route: 065
     Dates: start: 201907
  3. RYDAPT [Suspect]
     Active Substance: MIDOSTAURIN
     Dosage: 50 MG, 2X/DAY
     Route: 065
     Dates: start: 202001, end: 202101
  4. RYDAPT [Suspect]
     Active Substance: MIDOSTAURIN
     Dosage: 50 MG, BID (DAYS 8-21)
     Route: 065
     Dates: start: 201908
  5. RYDAPT [Suspect]
     Active Substance: MIDOSTAURIN
     Dosage: 50 MG, BID (DAYS 8-21)
     Route: 065
     Dates: start: 201910

REACTIONS (7)
  - Second primary malignancy [Unknown]
  - Myelodysplastic syndrome [Unknown]
  - Febrile neutropenia [Unknown]
  - Pneumonia fungal [Unknown]
  - Blast cells present [Unknown]
  - Marrow hyperplasia [Unknown]
  - Dysplasia [Unknown]

NARRATIVE: CASE EVENT DATE: 20190801
